FAERS Safety Report 10152341 (Version 1)
Quarter: 2014Q2

REPORT INFORMATION
  Report Type: Spontaneous
  Country: US (occurrence: None)
  Receive Date: 20140502
  Receipt Date: 20140502
  Transmission Date: 20141212
  Serious: No
  Sender: FDA-Public Use
  Company Number: None

PATIENT
  Age: 65 Year
  Sex: Male
  Weight: 113.4 kg

DRUGS (3)
  1. METOPROLOL TARTRATE [Suspect]
     Indication: ATRIAL FIBRILLATION
     Dates: start: 20140408, end: 20140428
  2. PRILOSEC [Concomitant]
  3. VITAMIN D [Concomitant]

REACTIONS (4)
  - Dyspnoea [None]
  - Stress [None]
  - Drug ineffective [None]
  - Fear [None]
